FAERS Safety Report 6945241-4 (Version None)
Quarter: 2010Q3

REPORT INFORMATION
  Report Type: 
  Country: None (occurrence: None)
  Receive Date: 20100827
  Receipt Date: 20100625
  Transmission Date: 20110219
  Serious: No
  Sender: FDA-Public Use
  Company Number: US-KINGPHARMUSA00001-K201000805

PATIENT
  Age: 89 Year
  Sex: Female
  Weight: 52.608 kg

DRUGS (4)
  1. FLECTOR [Suspect]
     Indication: MUSCULOSKELETAL PAIN
     Dosage: 1 PATCH, 3-4 TIMES A WEEK
     Route: 061
     Dates: start: 20100401
  2. FLECTOR [Suspect]
     Indication: ARTHRITIS
  3. VITAMINS [Concomitant]
     Dosage: UNK
  4. ACTONEL [Concomitant]
     Dosage: UNK

REACTIONS (1)
  - APPLICATION SITE RASH [None]
